FAERS Safety Report 10048605 (Version 1)
Quarter: 2014Q1

REPORT INFORMATION
  Report Type: Spontaneous
  Country: US (occurrence: US)
  Receive Date: 20140331
  Receipt Date: 20140331
  Transmission Date: 20141002
  Serious: No
  Sender: FDA-Public Use
  Company Number: 2014SP000945

PATIENT
  Sex: Female

DRUGS (3)
  1. LATUDA [Suspect]
     Indication: DEPRESSION
     Route: 048
     Dates: start: 20140318, end: 20140319
  2. ANTI-ASTHMATICS [Concomitant]
     Indication: ASTHMA
  3. CYMBALTA [Concomitant]
     Indication: DEPRESSION
     Dates: start: 2009

REACTIONS (3)
  - Swelling face [Recovered/Resolved]
  - Hypersensitivity [Unknown]
  - Rash generalised [Recovered/Resolved]
